FAERS Safety Report 25410967 (Version 1)
Quarter: 2025Q2

REPORT INFORMATION
  Report Type: Spontaneous
  Country: GB (occurrence: GB)
  Receive Date: 20250609
  Receipt Date: 20250609
  Transmission Date: 20250716
  Serious: Yes (Other)
  Sender: REGENERON
  Company Number: GB-SA-2025SA160080

PATIENT
  Age: 60 Year
  Sex: Male

DRUGS (2)
  1. PRALUENT [Suspect]
     Active Substance: ALIROCUMAB
     Indication: Hyperlipidaemia
     Route: 058
  2. PRALUENT [Suspect]
     Active Substance: ALIROCUMAB
     Dosage: 75 MG, QOW, SOLUTION FOR INJECTION
     Route: 058

REACTIONS (5)
  - Deafness [Unknown]
  - Eczema [Recovered/Resolved]
  - Spinal stenosis [Unknown]
  - Tendon calcification [Unknown]
  - Arthritis [Unknown]
